FAERS Safety Report 9735519 (Version 1)
Quarter: 2013Q4

REPORT INFORMATION
  Report Type: Spontaneous
  Country: US (occurrence: US)
  Receive Date: 20131206
  Receipt Date: 20131206
  Transmission Date: 20140711
  Serious: No
  Sender: FDA-Public Use
  Company Number: US-GILEAD-2009-0023450

PATIENT
  Sex: Male
  Weight: 106.59 kg

DRUGS (9)
  1. LETAIRIS [Suspect]
     Indication: PULMONARY ARTERIAL HYPERTENSION
     Route: 048
     Dates: start: 20090417
  2. TERAZOSIN [Concomitant]
  3. BENICAR HCT [Concomitant]
  4. ALLOPURINOL [Concomitant]
  5. NASONEX [Concomitant]
  6. FENOFIBRATE [Concomitant]
  7. NEXIUM [Concomitant]
  8. LOVAZA [Concomitant]
  9. LITHIUM CARBONATE [Concomitant]

REACTIONS (1)
  - Palpitations [Unknown]
